FAERS Safety Report 12803426 (Version 1)
Quarter: 2016Q4

REPORT INFORMATION
  Report Type: Spontaneous
  Country: US (occurrence: US)
  Receive Date: 20161003
  Receipt Date: 20161003
  Transmission Date: 20170207
  Serious: Yes (Death)
  Sender: FDA-Public Use
  Company Number: US-CELGENEUS-USA-2016097353

PATIENT
  Age: 75 Year
  Sex: Female
  Weight: 70.37 kg

DRUGS (1)
  1. ABRAXANE [Suspect]
     Active Substance: PACLITAXEL
     Indication: ADENOCARCINOMA PANCREAS
     Dosage: 100 MILLIGRAM
     Route: 041
     Dates: start: 201604, end: 201607

REACTIONS (1)
  - Death [Fatal]

NARRATIVE: CASE EVENT DATE: 20160906
